FAERS Safety Report 8912858 (Version 2)
Quarter: 2012Q4

REPORT INFORMATION
  Report Type: Report from Study
  Country: US (occurrence: US)
  Receive Date: 20121116
  Receipt Date: 20121207
  Transmission Date: 20130627
  Serious: Yes (Death, Hospitalization)
  Sender: FDA-Public Use
  Company Number: US-ROCHE-CID000000002222032

PATIENT
  Age: 6 Year
  Sex: Female
  Weight: 19.79 kg

DRUGS (4)
  1. BEVACIZUMAB [Suspect]
     Indication: MALIGNANT GLIOMA
     Dosage: day 1 and 15 of 28 day cycle
     Route: 042
     Dates: start: 20120105, end: 20121011
  2. IRINOTECAN [Concomitant]
     Indication: BRAIN STEM GLIOMA
     Dosage: day 1 and 15 of 28 days cycle
     Route: 042
     Dates: start: 20120315, end: 20121011
  3. DEXAMETHASONE [Concomitant]
     Indication: BRAIN STEM GLIOMA
     Route: 048
     Dates: end: 20121101
  4. OMEPRAZOLE [Concomitant]
     Route: 048
     Dates: end: 20121101

REACTIONS (4)
  - Disease progression [Fatal]
  - Choking [Unknown]
  - Mental status changes [Unknown]
  - Convulsion [Not Recovered/Not Resolved]
